FAERS Safety Report 8067415-4 (Version None)
Quarter: 2011Q4

REPORT INFORMATION
  Report Type: 
  Country: None (occurrence: None)
  Receive Date: 20111221
  Receipt Date: 20110328
  Transmission Date: 20120403
  Serious: Yes (Death, Life-Threatening)
  Sender: FDA-Public Use
  Company Number: PHHY2011US08907

PATIENT
  Age: 90 Year
  Sex: Female

DRUGS (4)
  1. EXJADE [Suspect]
     Indication: NEOPLASM
     Dosage: 750 MG, QD, ORAL, 375 MG, DAILY, ORAL
     Route: 048
     Dates: start: 20090701
  2. EXJADE [Suspect]
     Indication: MYELODYSPLASTIC SYNDROME
     Dosage: 750 MG, QD, ORAL, 375 MG, DAILY, ORAL
     Route: 048
     Dates: start: 20090701
  3. EXJADE [Suspect]
     Indication: NEOPLASM
     Dosage: 750 MG, QD, ORAL, 375 MG, DAILY, ORAL
     Route: 048
     Dates: start: 20091122
  4. EXJADE [Suspect]
     Indication: MYELODYSPLASTIC SYNDROME
     Dosage: 750 MG, QD, ORAL, 375 MG, DAILY, ORAL
     Route: 048
     Dates: start: 20091122

REACTIONS (1)
  - NEOPLASM MALIGNANT [None]
